FAERS Safety Report 16916192 (Version 2)
Quarter: 2021Q1

REPORT INFORMATION
  Report Type: Spontaneous
  Country: US (occurrence: US)
  Receive Date: 20191014
  Receipt Date: 20210305
  Transmission Date: 20210419
  Serious: No
  Sender: FDA-Public Use
  Company Number: US-SA-2019SA276595

PATIENT
  Sex: Male

DRUGS (1)
  1. DUPIXENT [Suspect]
     Active Substance: DUPILUMAB
     Indication: HYPERSENSITIVITY
     Dosage: 300 MG, QOW
     Route: 058
     Dates: start: 20180706

REACTIONS (4)
  - Product use in unapproved indication [Unknown]
  - Fatigue [Recovered/Resolved]
  - Drug hypersensitivity [Unknown]
  - Asthenia [Recovered/Resolved]
